FAERS Safety Report 7920671-2 (Version None)
Quarter: 2011Q4

REPORT INFORMATION
  Report Type: 
  Country: None (occurrence: None)
  Receive Date: 20111117
  Receipt Date: 20111006
  Transmission Date: 20120403
  Serious: Yes (Hospitalization)
  Sender: FDA-Public Use
  Company Number: TR-ROXANE LABORATORIES, INC.-2010-DE-01625GD

PATIENT
  Age: 47 Year
  Sex: Male
  Weight: 83 kg

DRUGS (5)
  1. SERTRALINE HYDROCHLORIDE [Suspect]
     Indication: MAJOR DEPRESSION
     Dosage: 100 MG
  2. OXYGEN [Concomitant]
  3. ISOFLURANE [Concomitant]
     Indication: GENERAL ANAESTHESIA
     Route: 055
  4. PROPOFOL [Concomitant]
     Indication: INDUCTION OF ANAESTHESIA
     Dosage: 200 MG
  5. MIVACURIUM CHLORIDE [Suspect]
     Indication: ENDOTRACHEAL INTUBATION
     Dosage: 17 MG

REACTIONS (4)
  - NEUROMUSCULAR BLOCK PROLONGED [None]
  - APNOEA [None]
  - DRUG EFFECT PROLONGED [None]
  - PSEUDOCHOLINESTERASE DEFICIENCY [None]
